FAERS Safety Report 5000991-4 (Version None)
Quarter: 2006Q2

REPORT INFORMATION
  Report Type: 
  Country: None (occurrence: None)
  Receive Date: 20060512
  Receipt Date: 20060503
  Transmission Date: 20061013
  Serious: Yes (Hospitalization)
  Sender: FDA-Public Use
  Company Number: 2006CG00808

PATIENT
  Age: 59 Year
  Sex: Male
  Weight: 76 kg

DRUGS (14)
  1. NEXIUM [Suspect]
     Route: 048
     Dates: start: 20060215, end: 20060217
  2. NEXIUM [Suspect]
     Route: 048
     Dates: start: 20060221
  3. PROPOFOL [Suspect]
     Route: 042
     Dates: start: 20060215
  4. ASPEGIC 1000 [Suspect]
     Route: 048
     Dates: start: 20060215
  5. LOVENOX [Suspect]
     Route: 058
     Dates: start: 20060215
  6. SUFENTA [Suspect]
     Route: 042
     Dates: start: 20060215
  7. TAHOR [Suspect]
     Route: 048
     Dates: start: 20060221, end: 20060312
  8. ACTRAPID [Suspect]
     Dates: start: 20060215
  9. MOPRAL [Concomitant]
     Dates: start: 20060217, end: 20060217
  10. INIPOMP [Concomitant]
     Dates: start: 20060218, end: 20060220
  11. HYDROCORTISONE HEMISUCCINATE [Concomitant]
     Dates: start: 20060218
  12. CORDARONE [Concomitant]
     Dates: start: 20060101
  13. TAZOCILLINE [Concomitant]
     Dates: start: 20060224, end: 20060305
  14. AMIKACIN [Concomitant]
     Dates: start: 20060224, end: 20060226

REACTIONS (7)
  - ANURIA [None]
  - BACTERIAL INFECTION [None]
  - BLOOD CREATINE PHOSPHOKINASE INCREASED [None]
  - HAEMODIALYSIS [None]
  - METABOLIC ACIDOSIS [None]
  - RHABDOMYOLYSIS [None]
  - TRANSAMINASES INCREASED [None]
